FAERS Safety Report 12702053 (Version 1)
Quarter: 2016Q3

REPORT INFORMATION
  Report Type: Spontaneous
  Country: GB (occurrence: GB)
  Receive Date: 20160831
  Receipt Date: 20160831
  Transmission Date: 20161109
  Serious: Yes (Hospitalization)
  Sender: FDA-Public Use
  Company Number: GB-DRREDDYS-GER/UKI/16/0082740

PATIENT
  Age: 88 Year
  Sex: Female
  Weight: 59 kg

DRUGS (1)
  1. MEMANTIN [Suspect]
     Active Substance: MEMANTINE
     Indication: DEMENTIA
     Route: 048
     Dates: end: 20160811

REACTIONS (4)
  - Hypoxia [Unknown]
  - Unresponsive to stimuli [Unknown]
  - Pulmonary embolism [Recovering/Resolving]
  - Splenic infarction [Recovering/Resolving]

NARRATIVE: CASE EVENT DATE: 20160804
